FAERS Safety Report 22317179 (Version 2)
Quarter: 2023Q2

REPORT INFORMATION
  Report Type: Spontaneous
  Country: CA (occurrence: CA)
  Receive Date: 20230514
  Receipt Date: 20230519
  Transmission Date: 20230721
  Serious: Yes (Other)
  Sender: FDA-Public Use
  Company Number: CA-CELLTRION INC.-2020CA020634

PATIENT

DRUGS (26)
  1. INFLECTRA [Suspect]
     Active Substance: INFLIXIMAB-DYYB
     Indication: Ankylosing spondylitis
     Dosage: 5 MG/KG, (325 MG) 0, 2, 6, THEN EVERY 8 WEEKS,ADJUST TO HIGHEST VIAL
     Route: 042
     Dates: start: 20200305
  2. INFLECTRA [Suspect]
     Active Substance: INFLIXIMAB-DYYB
     Indication: Crohn^s disease
     Dosage: 5 MG/KG, (325 MG) 0, 2, 6, THEN EVERY 8 WEEKS
     Route: 042
     Dates: start: 20200409
  3. INFLECTRA [Suspect]
     Active Substance: INFLIXIMAB-DYYB
     Dosage: 5 MG/KG, (325 MG) 0, 2, 6, THEN EVERY 8 WEEKS
     Route: 042
     Dates: start: 20200507
  4. INFLECTRA [Suspect]
     Active Substance: INFLIXIMAB-DYYB
     Dosage: 5 MG/KG, (325 MG) 0, 2, 6, THEN EVERY 8 WEEKS
     Route: 042
     Dates: start: 20200702
  5. INFLECTRA [Suspect]
     Active Substance: INFLIXIMAB-DYYB
     Dosage: 5 MG/KG, (325 MG) 0, 2, 6, THEN EVERY 8 WEEKS
     Route: 042
     Dates: start: 20200827
  6. INFLECTRA [Suspect]
     Active Substance: INFLIXIMAB-DYYB
     Dosage: 5 MG/KG, (325 MG) 0, 2, 6, THEN EVERY 8 WEEKS
     Route: 042
     Dates: start: 20201022
  7. INFLECTRA [Suspect]
     Active Substance: INFLIXIMAB-DYYB
     Dosage: 5 MG/KG, (325 MG) 0, 2, 6, THEN EVERY 8 WEEKS
     Route: 042
     Dates: start: 20210114
  8. INFLECTRA [Suspect]
     Active Substance: INFLIXIMAB-DYYB
     Dosage: 5 MG/KG, (325 MG) 0, 2, 6, THEN EVERY 8 WEEKS
     Route: 042
     Dates: start: 20210311
  9. INFLECTRA [Suspect]
     Active Substance: INFLIXIMAB-DYYB
     Dosage: 5 MG/KG, (325 MG) 0, 2, 6, THEN EVERY 8 WEEKS
     Route: 042
     Dates: start: 20210506
  10. INFLECTRA [Suspect]
     Active Substance: INFLIXIMAB-DYYB
     Dosage: 5 MG/KG, (325 MG) 0, 2, 6, THEN EVERY 8 WEEKS
     Route: 042
     Dates: start: 20210630
  11. INFLECTRA [Suspect]
     Active Substance: INFLIXIMAB-DYYB
     Dosage: 5 MG/KG, (325 MG) 0, 2, 6, THEN EVERY 8 WEEKS
     Route: 042
     Dates: start: 20210824
  12. INFLECTRA [Suspect]
     Active Substance: INFLIXIMAB-DYYB
     Dosage: 5 MG/KG, (325 MG) 0, 2, 6, THEN EVERY 8 WEEKS
     Route: 042
     Dates: start: 20211020
  13. INFLECTRA [Suspect]
     Active Substance: INFLIXIMAB-DYYB
     Dosage: 5 MG/KG, (325 MG) 0, 2, 6, THEN EVERY 8 WEEKS
     Route: 042
     Dates: start: 20211229
  14. INFLECTRA [Suspect]
     Active Substance: INFLIXIMAB-DYYB
     Dosage: 5 MG/KG, (325 MG) 0, 2, 6, THEN EVERY 8 WEEKS
     Route: 042
     Dates: start: 20220215
  15. INFLECTRA [Suspect]
     Active Substance: INFLIXIMAB-DYYB
     Dosage: 5 MG/KG, (325 MG) 0, 2, 6, THEN EVERY 8 WEEKS
     Route: 042
     Dates: start: 20220215
  16. INFLECTRA [Suspect]
     Active Substance: INFLIXIMAB-DYYB
     Dosage: 5 MG/KG, (325 MG) 0, 2, 6, THEN EVERY 8 WEEKS
     Route: 042
     Dates: start: 20220414
  17. INFLECTRA [Suspect]
     Active Substance: INFLIXIMAB-DYYB
     Dosage: 5 MG/KG, (325 MG) 0, 2, 6, THEN EVERY 8 WEEKS
     Route: 042
     Dates: start: 20220414
  18. INFLECTRA [Suspect]
     Active Substance: INFLIXIMAB-DYYB
     Dosage: 5 MG/KG, (325 MG) 0, 2, 6, THEN EVERY 8 WEEKS
     Route: 042
     Dates: start: 20220607
  19. INFLECTRA [Suspect]
     Active Substance: INFLIXIMAB-DYYB
     Dosage: 5 MG/KG 0, 2, 6, THEN EVERY 8 WEEKS
     Route: 042
     Dates: start: 20220813
  20. INFLECTRA [Suspect]
     Active Substance: INFLIXIMAB-DYYB
     Dosage: 5 MG/KG 0, 2, 6, THEN EVERY 8 WEEKS
     Route: 042
     Dates: start: 20221019
  21. INFLECTRA [Suspect]
     Active Substance: INFLIXIMAB-DYYB
     Dosage: 5 MG/KG 0, 2, 6, THEN EVERY 8 WEEKS
     Route: 042
     Dates: start: 20221219
  22. INFLECTRA [Suspect]
     Active Substance: INFLIXIMAB-DYYB
     Dosage: 5 MG/KG 0, 2, 6, THEN EVERY 8 WEEKS, ADJUST TO HIGHEST VIAL
     Route: 042
     Dates: start: 20230209
  23. INFLECTRA [Suspect]
     Active Substance: INFLIXIMAB-DYYB
     Dosage: 5 MG/KG, EVERY 8 WEEKS
     Route: 042
     Dates: start: 20230510
  24. CORTISONE [Concomitant]
     Active Substance: CORTISONE
     Dosage: 1 DF, DOSAGE NOT AVAILABLE
     Route: 065
  25. METHOTREXATE [Concomitant]
     Active Substance: METHOTREXATE
     Dosage: UNK
  26. PREDNISONE [Concomitant]
     Active Substance: PREDNISONE
     Dosage: 15 MG, UNK

REACTIONS (27)
  - Pneumonia [Recovered/Resolved]
  - Therapeutic response shortened [Unknown]
  - Off label use [Unknown]
  - Intentional product use issue [Unknown]
  - Inappropriate schedule of product administration [Unknown]
  - Nasopharyngitis [Unknown]
  - Dry eye [Unknown]
  - Hypertrichosis [Unknown]
  - Asthenia [Unknown]
  - Nasopharyngitis [Not Recovered/Not Resolved]
  - Exposure to SARS-CoV-2 [Unknown]
  - Cough [Not Recovered/Not Resolved]
  - Illness [Unknown]
  - Bone pain [Not Recovered/Not Resolved]
  - Oropharyngeal pain [Not Recovered/Not Resolved]
  - Myalgia [Not Recovered/Not Resolved]
  - Headache [Unknown]
  - Condition aggravated [Recovering/Resolving]
  - COVID-19 [Unknown]
  - Heart rate decreased [Unknown]
  - Pain [Unknown]
  - Arthralgia [Not Recovered/Not Resolved]
  - Influenza [Recovered/Resolved]
  - Influenza like illness [Not Recovered/Not Resolved]
  - Gastroenteritis [Recovered/Resolved]
  - Pyrexia [Recovering/Resolving]
  - Sinusitis [Recovered/Resolved]

NARRATIVE: CASE EVENT DATE: 20200101
